FAERS Safety Report 10058062 (Version 1)
Quarter: 2014Q2

REPORT INFORMATION
  Report Type: Spontaneous
  Country: US (occurrence: None)
  Receive Date: 20140403
  Receipt Date: 20140403
  Transmission Date: 20141212
  Serious: No
  Sender: FDA-Public Use
  Company Number: None

PATIENT
  Age: 24 Year
  Sex: Female

DRUGS (8)
  1. CIPROFLOXACIN 500MG [Suspect]
     Indication: WOUND INFECTION PSEUDOMONAS
     Route: 048
     Dates: start: 20140326, end: 20140326
  2. DEPAKOTE [Concomitant]
  3. DEPAKOTE [Concomitant]
  4. IBUPROFEN [Concomitant]
  5. HALDOL [Concomitant]
  6. HALDOL [Concomitant]
  7. COGENTIN [Concomitant]
  8. MUPIROCIN [Concomitant]

REACTIONS (1)
  - Rash [None]
